FAERS Safety Report 14516622 (Version 1)
Quarter: 2018Q1

REPORT INFORMATION
  Report Type: Report from Study
  Country: None (occurrence: US)
  Receive Date: 20180212
  Receipt Date: 20180212
  Transmission Date: 20180509
  Serious: Yes (Hospitalization, Other)
  Sender: FDA-Public Use
  Company Number: US-ABBVIE-18K-163-2221268-00

PATIENT
  Age: 44 Year
  Sex: Female
  Weight: 104.42 kg

DRUGS (4)
  1. IRON [Concomitant]
     Active Substance: IRON
     Indication: MINERAL SUPPLEMENTATION
  2. DOCUSATE [Concomitant]
     Active Substance: DOCUSATE
     Indication: HIATUS HERNIA
  3. HUMIRA [Suspect]
     Active Substance: ADALIMUMAB
     Indication: PSORIASIS
     Route: 058
     Dates: start: 2017, end: 201711
  4. LISINOPRIL. [Concomitant]
     Active Substance: LISINOPRIL
     Indication: HYPERTENSION

REACTIONS (4)
  - Postoperative wound infection [Unknown]
  - Abdominal pain [Recovering/Resolving]
  - Hiatus hernia [Not Recovered/Not Resolved]
  - Benign neoplasm of cervix uteri [Recovered/Resolved]

NARRATIVE: CASE EVENT DATE: 201711
